FAERS Safety Report 17418478 (Version 2)
Quarter: 2020Q1

REPORT INFORMATION
  Report Type: Spontaneous
  Country: PL (occurrence: PL)
  Receive Date: 20200214
  Receipt Date: 20200224
  Transmission Date: 20200409
  Serious: Yes (Hospitalization, Other)
  Sender: FDA-Public Use
  Company Number: PL-TEVA-2020-PL-1183438

PATIENT
  Age: 40 Year
  Sex: Female
  Weight: 64 kg

DRUGS (12)
  1. TACROLIMUS. [Suspect]
     Active Substance: TACROLIMUS
     Dosage: 2 X 3 MG
     Route: 065
  2. MYCOPHENOLATE MOFETIL. [Suspect]
     Active Substance: MYCOPHENOLATE MOFETIL
     Dosage: 2 X 1000 MG
     Dates: start: 2004
  3. PREDNISONE. [Suspect]
     Active Substance: PREDNISONE
     Dosage: DRUG DOSES ON DISCHARGE: 1 X 15 MG
     Route: 065
  4. PREDNISONE. [Suspect]
     Active Substance: PREDNISONE
     Dosage: 1 X 5 MG
     Route: 065
  5. TACROLIMUS. [Suspect]
     Active Substance: TACROLIMUS
     Dosage: 2 X 5 MG
     Route: 065
  6. MYCOPHENOLATE MOFETIL. [Suspect]
     Active Substance: MYCOPHENOLATE MOFETIL
     Indication: IMMUNOSUPPRESSANT DRUG THERAPY
     Dosage: INITIALLY AT HIGHER DOSES, AND THEN TITRATED DOWNWARD.
     Route: 065
     Dates: start: 2003
  7. TACROLIMUS. [Suspect]
     Active Substance: TACROLIMUS
     Indication: IMMUNOSUPPRESSANT DRUG THERAPY
     Dosage: INITIALLY AT HIGHER DOSES, AND THEN TITRATED DOWNWARD.
     Route: 065
     Dates: start: 2003
  8. PREDNISONE. [Suspect]
     Active Substance: PREDNISONE
     Indication: IMMUNOSUPPRESSANT DRUG THERAPY
     Dosage: INITIALLY AT HIGHER DOSES, AND THEN TITRATED DOWNWARD.
     Route: 065
     Dates: start: 2003
  9. MYCOPHENOLATE MOFETIL. [Suspect]
     Active Substance: MYCOPHENOLATE MOFETIL
     Dosage: 2 X 250 MG
     Route: 065
  10. MYCOPHENOLATE MOFETIL. [Suspect]
     Active Substance: MYCOPHENOLATE MOFETIL
     Dosage: DRUG DOSES ON DISCHARGE: 2 X 0.5 G
     Route: 065
  11. PREDNISONE. [Suspect]
     Active Substance: PREDNISONE
     Dosage: 10 MG
     Route: 065
  12. TACROLIMUS. [Suspect]
     Active Substance: TACROLIMUS
     Dosage: DRUG DOSE ON DISCHARGE: 2 X 6 MG
     Route: 065

REACTIONS (1)
  - New onset diabetes after transplantation [Recovered/Resolved]

NARRATIVE: CASE EVENT DATE: 2003
